FAERS Safety Report 4871931-3 (Version None)
Quarter: 2005Q4

REPORT INFORMATION
  Report Type: 
  Country: None (occurrence: None)
  Receive Date: 20051230
  Receipt Date: 20051220
  Transmission Date: 20060501
  Serious: Yes (Death, Hospitalization, Other)
  Sender: FDA-Public Use
  Company Number: 2005169271

PATIENT
  Age: 81 Year
  Sex: Male

DRUGS (7)
  1. SULFASALAZINE [Suspect]
     Indication: DIARRHOEA
     Dosage: 3 GRAM (1 GRAM, 3 IN 1 D), ORAL
     Route: 048
     Dates: start: 20051001, end: 20051123
  2. NAFTIDROFURYL (NAFTIDROFURYL) [Concomitant]
  3. PENTOXYPHYLLINE (PENTOXIFYLLINE) [Concomitant]
  4. OMEPRAZOLE [Concomitant]
  5. LOPERAMID (LOPERAMIDE HYDROCHLORIDE) [Concomitant]
  6. SERTRALINE [Concomitant]
  7. PANCREATIN TRIPLE STRENGTH CAP [Concomitant]

REACTIONS (3)
  - AGRANULOCYTOSIS [None]
  - COLITIS ISCHAEMIC [None]
  - SEPSIS [None]
